FAERS Safety Report 8373835-0 (Version None)
Quarter: 2012Q2

REPORT INFORMATION
  Report Type: 
  Country: None (occurrence: None)
  Receive Date: 20120521
  Receipt Date: 20120514
  Transmission Date: 20120825
  Serious: Yes (Hospitalization, Other)
  Sender: FDA-Public Use
  Company Number: DE-ACTELION-A-US2012-60812

PATIENT

DRUGS (2)
  1. VENTAVIS [Suspect]
     Indication: PULMONARY ARTERIAL HYPERTENSION
     Dosage: 2.5 MCG, Q4HR
     Route: 055
     Dates: start: 20110922, end: 20120311
  2. TRACLEER [Concomitant]
     Indication: PULMONARY ARTERIAL HYPERTENSION
     Dosage: 125 MG, QD
     Route: 048

REACTIONS (3)
  - PULMONARY ARTERIAL HYPERTENSION [None]
  - COMA [None]
  - LUNG TRANSPLANT [None]
